FAERS Safety Report 12904835 (Version 3)
Quarter: 2016Q4

REPORT INFORMATION
  Report Type: Spontaneous
  Country: US (occurrence: US)
  Receive Date: 20161102
  Receipt Date: 20161222
  Transmission Date: 20170207
  Serious: No
  Sender: FDA-Public Use
  Company Number: US-ACTELION-A-US2016-144664

PATIENT
  Age: 54 Year
  Sex: Female

DRUGS (13)
  1. TYVASO [Suspect]
     Active Substance: TREPROSTINIL
     Indication: PRODUCT USED FOR UNKNOWN INDICATION
     Route: 055
  2. IRON [Concomitant]
     Active Substance: IRON
  3. HYDROXYCHLOROQUINE [Concomitant]
     Active Substance: HYDROXYCHLOROQUINE
  4. POTASSIUM [Concomitant]
     Active Substance: POTASSIUM
  5. AMBRISENTAN [Suspect]
     Active Substance: AMBRISENTAN
     Indication: PULMONARY ARTERIAL HYPERTENSION
     Dosage: 10 MG, QD
     Route: 065
     Dates: start: 20150505
  6. PREDNISONE. [Concomitant]
     Active Substance: PREDNISONE
  7. UPTRAVI [Suspect]
     Active Substance: SELEXIPAG
     Indication: PULMONARY ARTERIAL HYPERTENSION
     Route: 048
  8. ADCIRCA [Concomitant]
     Active Substance: TADALAFIL
  9. CALCIUM [Concomitant]
     Active Substance: CALCIUM
  10. LEVOTHYROXINE. [Concomitant]
     Active Substance: LEVOTHYROXINE
  11. FUROSEMIDE. [Concomitant]
     Active Substance: FUROSEMIDE
  12. SPIRONOLACTONE. [Concomitant]
     Active Substance: SPIRONOLACTONE
  13. DILANTIN [Concomitant]
     Active Substance: PHENYTOIN

REACTIONS (6)
  - Musculoskeletal stiffness [Unknown]
  - Headache [Unknown]
  - Feeling abnormal [Unknown]
  - Feeling hot [Unknown]
  - Pain in jaw [Unknown]
  - Arthropathy [Unknown]

NARRATIVE: CASE EVENT DATE: 20160922
